FAERS Safety Report 5757612-2 (Version None)
Quarter: 2008Q2

REPORT INFORMATION
  Report Type: 
  Country: None (occurrence: None)
  Receive Date: 20080603
  Receipt Date: 20080522
  Transmission Date: 20081010
  Serious: Yes (Hospitalization)
  Sender: FDA-Public Use
  Company Number: CZ-PFIZER INC-2008041003

PATIENT
  Sex: Female
  Weight: 95 kg

DRUGS (2)
  1. SALAZOPYRIN EN [Suspect]
     Indication: SPONDYLITIS
     Route: 048
     Dates: start: 20080312, end: 20080415
  2. SIMVASTATIN [Concomitant]
     Route: 048

REACTIONS (4)
  - DRUG ERUPTION [None]
  - NAUSEA [None]
  - OEDEMA PERIPHERAL [None]
  - SWELLING FACE [None]
